FAERS Safety Report 21381607 (Version 29)
Quarter: 2025Q1

REPORT INFORMATION
  Report Type: Report from Study
  Country: US (occurrence: US)
  Receive Date: 20220927
  Receipt Date: 20250311
  Transmission Date: 20250409
  Serious: Yes (Hospitalization, Other)
  Sender: TAKEDA
  Company Number: US-TAKEDA-2022TUS059632

PATIENT
  Age: 62 Year
  Sex: Female
  Weight: 64 kg

DRUGS (33)
  1. HUMAN IMMUNOGLOBULIN G [Suspect]
     Active Substance: HUMAN IMMUNOGLOBULIN G
     Indication: Immunodeficiency common variable
     Dosage: 25 GRAM, 1/WEEK
     Dates: start: 20220907
  2. HUMAN IMMUNOGLOBULIN G [Suspect]
     Active Substance: HUMAN IMMUNOGLOBULIN G
     Dosage: 25 GRAM, Q4WEEKS
  3. AMIODARONE HYDROCHLORIDE [Suspect]
     Active Substance: AMIODARONE HYDROCHLORIDE
     Indication: Product used for unknown indication
  4. ACETAMINOPHEN [Concomitant]
     Active Substance: ACETAMINOPHEN
  5. EPINEPHRINE [Concomitant]
     Active Substance: EPINEPHRINE
  6. SODIUM CHLORIDE [Concomitant]
     Active Substance: SODIUM CHLORIDE
  7. TUMS [Concomitant]
     Active Substance: CALCIUM CARBONATE
  8. FUROSEMIDE [Concomitant]
     Active Substance: FUROSEMIDE
  9. POTASSIUM CHLORIDE [Concomitant]
     Active Substance: POTASSIUM CHLORIDE
  10. ASCORBIC ACID\IRON [Concomitant]
     Active Substance: ASCORBIC ACID\IRON
  11. SODIUM CHLORIDE [Concomitant]
     Active Substance: SODIUM CHLORIDE
  12. ALLOPURINOL [Concomitant]
     Active Substance: ALLOPURINOL
  13. ALBUTEROL SULFATE [Concomitant]
     Active Substance: ALBUTEROL SULFATE
  14. PROAIR RESPICLICK [Concomitant]
     Active Substance: ALBUTEROL SULFATE
  15. LIDOCAINE [Concomitant]
     Active Substance: LIDOCAINE
  16. HEPARIN [Concomitant]
     Active Substance: HEPARIN SODIUM
  17. METOPROLOL SUCCINATE [Concomitant]
     Active Substance: METOPROLOL SUCCINATE
  18. DIPHENHYDRAMINE HYDROCHLORIDE [Concomitant]
     Active Substance: DIPHENHYDRAMINE HYDROCHLORIDE
  19. LEVOTHYROXINE [Concomitant]
     Active Substance: LEVOTHYROXINE
  20. WARFARIN SODIUM [Concomitant]
     Active Substance: WARFARIN SODIUM
  21. GABAPENTIN [Concomitant]
     Active Substance: GABAPENTIN
  22. SPIRONOLACTONE AND HYDROCHLOROTHIAZIDE [Concomitant]
     Active Substance: HYDROCHLOROTHIAZIDE\SPIRONOLACTONE
  23. WARFARIN [Concomitant]
     Active Substance: WARFARIN
  24. FOLIC ACID [Concomitant]
     Active Substance: FOLIC ACID
  25. POTASSIUM [Concomitant]
     Active Substance: POTASSIUM
  26. PROAIR HFA [Concomitant]
     Active Substance: ALBUTEROL SULFATE
  27. ALPRAZOLAM [Concomitant]
     Active Substance: ALPRAZOLAM
  28. PANTOPRAZOLE SODIUM [Concomitant]
     Active Substance: PANTOPRAZOLE SODIUM
  29. PREDNISONE [Concomitant]
     Active Substance: PREDNISONE
  30. STIOLTO RESPIMAT [Concomitant]
     Active Substance: OLODATEROL HYDROCHLORIDE\TIOTROPIUM BROMIDE MONOHYDRATE
  31. METOPROLOL [Concomitant]
     Active Substance: METOPROLOL
  32. SPIRONOLACTONE [Concomitant]
     Active Substance: SPIRONOLACTONE
  33. DESVENLAFAXINE SUCCINATE [Concomitant]
     Active Substance: DESVENLAFAXINE SUCCINATE

REACTIONS (34)
  - Pneumonia [Unknown]
  - Atrial fibrillation [Not Recovered/Not Resolved]
  - Cystitis [Unknown]
  - Illness [Not Recovered/Not Resolved]
  - Leukaemia [Unknown]
  - Chronic lymphocytic leukaemia [Unknown]
  - Cardiac arrest [Unknown]
  - Respiratory tract irritation [Unknown]
  - Sinus congestion [Unknown]
  - Nasopharyngitis [Unknown]
  - Sinus disorder [Unknown]
  - Infection [Unknown]
  - Fungal infection [Unknown]
  - Insurance issue [Unknown]
  - Chronic sinusitis [Not Recovered/Not Resolved]
  - Drug intolerance [Unknown]
  - Poor venous access [Unknown]
  - Renal function test abnormal [Unknown]
  - Herpes zoster [Unknown]
  - COVID-19 [Unknown]
  - Hepatic enzyme increased [Unknown]
  - Multiple allergies [Unknown]
  - Inappropriate schedule of product administration [Unknown]
  - Product use issue [Unknown]
  - White blood cell count increased [Unknown]
  - Abdominal discomfort [Unknown]
  - Sinusitis [Unknown]
  - Infusion site bruising [Unknown]
  - Contusion [Unknown]
  - Nasal congestion [Unknown]
  - Anxiety [Unknown]
  - Fatigue [Unknown]
  - Headache [Unknown]
  - Chest pain [Unknown]

NARRATIVE: CASE EVENT DATE: 20230105
